FAERS Safety Report 21336249 (Version 1)
Quarter: 2022Q3

REPORT INFORMATION
  Report Type: Spontaneous
  Country: CN (occurrence: CN)
  Receive Date: 20220915
  Receipt Date: 20220915
  Transmission Date: 20221027
  Serious: No
  Sender: FDA-Public Use
  Company Number: CN-FreseniusKabi-FK202212367

PATIENT
  Age: 84 Year
  Sex: Male
  Weight: 53.00 kg

DRUGS (1)
  1. FRESUBIN [Suspect]
     Active Substance: AMINO ACIDS\DEXTROSE\ELECTROLYTES NOS\SOYBEAN OIL\VITAMINS
     Indication: Cerebral infarction
     Dosage: 500 MILLILITRES?02-SEP-2022
     Route: 041
     Dates: start: 20220902

REACTIONS (1)
  - Vomiting [Recovering/Resolving]

NARRATIVE: CASE EVENT DATE: 20220902
